FAERS Safety Report 9168229 (Version 1)
Quarter: 2013Q1

REPORT INFORMATION
  Report Type: Spontaneous
  Country: FR (occurrence: None)
  Receive Date: 20130307
  Receipt Date: 20130307
  Transmission Date: 20140127
  Serious: Yes (Hospitalization)
  Sender: FDA-Public Use
  Company Number: SYM-2013-01300

PATIENT
  Sex: 0

DRUGS (4)
  1. FLAGYL [Suspect]
     Indication: DERMO-HYPODERMITIS
     Route: 042
     Dates: start: 20130107, end: 20130121
  2. VANCOMYCIN HYDROCHLORIDE [Suspect]
     Indication: DERMO-HYPODERMITIS
     Dates: start: 20130107, end: 20130114
  3. TAZOCILLINE [Suspect]
     Indication: DERMO-HYPODERMITIS
     Dates: start: 20130107, end: 20130114
  4. DEPAKINE (ALL OTHER THERAPEUTIC PRODUCS) [Concomitant]

REACTIONS (2)
  - Renal failure acute [None]
  - Drug level increased [None]
